FAERS Safety Report 4509620-7 (Version None)
Quarter: 2004Q4

REPORT INFORMATION
  Report Type: 
  Country: None (occurrence: None)
  Receive Date: 20041124
  Receipt Date: 20030805
  Transmission Date: 20050328
  Serious: No
  Sender: FDA-Public Use
  Company Number: US-BRISTOL-MYERS SQUIBB COMPANY-12348082

PATIENT
  Age: 53 Year
  Sex: Female
  Weight: 99 kg

DRUGS (2)
  1. AVALIDE [Suspect]
     Indication: HYPERTENSION
     Dosage: DOSE: 300 MG/12.5 MG
     Route: 048
     Dates: start: 20030801, end: 20030804
  2. ZIAC [Concomitant]

REACTIONS (2)
  - PRURITUS [None]
  - RASH [None]
